FAERS Safety Report 23854743 (Version 1)
Quarter: 2024Q2

REPORT INFORMATION
  Report Type: Spontaneous
  Country: RO (occurrence: RO)
  Receive Date: 20240514
  Receipt Date: 20240514
  Transmission Date: 20240715
  Serious: Yes (Other)
  Sender: FDA-Public Use
  Company Number: RO-TEVA-VS-3188551

PATIENT
  Age: 51 Year
  Sex: Female

DRUGS (10)
  1. ZOLEDRONIC ACID [Suspect]
     Active Substance: ZOLEDRONIC ACID
     Indication: Invasive breast carcinoma
     Dosage: 4 MILLIGRAM, Q3MONTHS, AT 3 MONTHS
     Route: 042
  2. ZOLEDRONIC ACID [Suspect]
     Active Substance: ZOLEDRONIC ACID
     Indication: Bone neoplasm
  3. FULVESTRANT [Suspect]
     Active Substance: FULVESTRANT
     Indication: Bone neoplasm
     Dosage: UNK
     Route: 030
     Dates: start: 202310, end: 202402
  4. FULVESTRANT [Suspect]
     Active Substance: FULVESTRANT
     Indication: Invasive breast carcinoma
  5. ANASTROZOLE [Suspect]
     Active Substance: ANASTROZOLE
     Indication: Bone neoplasm
     Dosage: 1 MILLIGRAM, QD
     Route: 065
     Dates: start: 201810
  6. ANASTROZOLE [Suspect]
     Active Substance: ANASTROZOLE
     Indication: Invasive breast carcinoma
  7. DENOSUMAB [Suspect]
     Active Substance: DENOSUMAB
     Indication: Bone neoplasm
     Dosage: 120 MILLIGRAM, Q28D
     Route: 058
     Dates: start: 202310, end: 202402
  8. DENOSUMAB [Suspect]
     Active Substance: DENOSUMAB
     Indication: Invasive breast carcinoma
  9. PALBOCICLIB [Suspect]
     Active Substance: PALBOCICLIB
     Indication: Bone neoplasm
     Dosage: 125 MILLIGRAM, Q21D
     Route: 065
  10. PALBOCICLIB [Suspect]
     Active Substance: PALBOCICLIB
     Indication: Invasive breast carcinoma

REACTIONS (6)
  - Hepatic cancer [Unknown]
  - Metastases to bone [Unknown]
  - Lymphadenopathy mediastinal [Unknown]
  - Carbohydrate antigen 15-3 increased [Unknown]
  - Pulmonary mass [Unknown]
  - Bone pain [Unknown]

NARRATIVE: CASE EVENT DATE: 20231001
